FAERS Safety Report 22250540 (Version 1)
Quarter: 2023Q2

REPORT INFORMATION
  Report Type: Spontaneous
  Country: US (occurrence: US)
  Receive Date: 20230425
  Receipt Date: 20230425
  Transmission Date: 20230721
  Serious: No
  Sender: FDA-Public Use
  Company Number: US-SANOFI-01584418

PATIENT
  Age: 88 Year
  Sex: Male

DRUGS (1)
  1. TOUJEO [Suspect]
     Active Substance: INSULIN GLARGINE
     Indication: Diabetes mellitus
     Dosage: 12 UNITS IN THE MORNING, 5 UNITS IN THE EVENING, BID
     Route: 058

REACTIONS (1)
  - Inappropriate schedule of product administration [Unknown]
